FAERS Safety Report 10428492 (Version 3)
Quarter: 2014Q3

REPORT INFORMATION
  Report Type: Spontaneous
  Country: BR (occurrence: BR)
  Receive Date: 20140903
  Receipt Date: 20140915
  Transmission Date: 20150326
  Serious: Yes (Other)
  Sender: FDA-Public Use
  Company Number: BR-PFIZER INC-2014241124

PATIENT
  Age: 69 Year
  Sex: Female
  Weight: 90 kg

DRUGS (4)
  1. OS-CAL [Concomitant]
     Indication: CALCIUM DEFICIENCY
     Dosage: 500MG (1 TABLET) ONCE DAILY IN THE MORNIN
     Dates: start: 201406
  2. LIPITOR [Suspect]
     Active Substance: ATORVASTATIN CALCIUM
     Indication: BLOOD CHOLESTEROL INCREASED
     Dosage: 40MG (1 TABLET) ONCE DAILY AT NIGHT
     Route: 048
     Dates: start: 2011
  3. SOMALGIN CARDIO [Concomitant]
     Active Substance: ASPIRIN\DIHYDROXYALUMINUM AMINOACETATE ANHYDROUS\MAGNESIUM CARBONATE
     Indication: BLOOD DISORDER
     Dosage: 100MG (1 TABLET) ONCE DAILY IN THE MORNING
     Dates: start: 201405
  4. PURAN [Concomitant]
     Active Substance: LEVOTHYROXINE SODIUM
     Indication: HYPOTHYROIDISM
     Dosage: 88MG (1 TABLET) ONCE DAILY IN THE MORNING
     Dates: start: 1963

REACTIONS (7)
  - Dysuria [Unknown]
  - Depression [Not Recovered/Not Resolved]
  - Arrhythmia [Not Recovered/Not Resolved]
  - Insomnia [Not Recovered/Not Resolved]
  - Disorientation [Unknown]
  - Condition aggravated [Not Recovered/Not Resolved]
  - Drug ineffective [Unknown]

NARRATIVE: CASE EVENT DATE: 2012
